FAERS Safety Report 7261310-6 (Version None)
Quarter: 2011Q1

REPORT INFORMATION
  Report Type: 
  Country: None (occurrence: None)
  Receive Date: 20110130
  Receipt Date: 20101018
  Transmission Date: 20110831
  Serious: No
  Sender: FDA-Public Use
  Company Number: US-ABBOTT-10P-163-0679964-00

PATIENT
  Sex: Male
  Weight: 76.272 kg

DRUGS (9)
  1. CANASA [Concomitant]
     Indication: PRODUCT USED FOR UNKNOWN INDICATION
  2. HYDROMAX [Concomitant]
     Indication: PRODUCT USED FOR UNKNOWN INDICATION
  3. HUMIRA [Suspect]
     Indication: COLITIS ULCERATIVE
     Route: 058
  4. LOMOTIL [Concomitant]
     Indication: PRODUCT USED FOR UNKNOWN INDICATION
  5. UALDA [Concomitant]
     Indication: PRODUCT USED FOR UNKNOWN INDICATION
     Route: 048
  6. MERCAPTOPURINE [Concomitant]
     Indication: PRODUCT USED FOR UNKNOWN INDICATION
     Route: 048
  7. INSULIN [Concomitant]
     Indication: DIABETES MELLITUS
  8. FORTAMET [Concomitant]
     Indication: DIABETES MELLITUS
  9. ASACOL [Concomitant]
     Indication: PRODUCT USED FOR UNKNOWN INDICATION
     Dosage: REPLACED BY UALDA

REACTIONS (6)
  - FATIGUE [None]
  - RESTLESSNESS [None]
  - WEIGHT DECREASED [None]
  - PAIN IN EXTREMITY [None]
  - MUSCLE SPASMS [None]
  - FREQUENT BOWEL MOVEMENTS [None]
